FAERS Safety Report 4577325-2 (Version None)
Quarter: 2005Q1

REPORT INFORMATION
  Report Type: 
  Country: None (occurrence: None)
  Receive Date: 20050210
  Receipt Date: 20041206
  Transmission Date: 20050727
  Serious: Yes (Life-Threatening, Hospitalization, Other)
  Sender: FDA-Public Use
  Company Number: US-GLAXOSMITHKLINE-A0536198A

PATIENT
  Age: 57 Year
  Sex: Male
  Weight: 111.8 kg

DRUGS (5)
  1. ADVAIR DISKUS 100/50 [Suspect]
     Indication: ASTHMA
     Route: 055
     Dates: start: 20011211, end: 20041119
  2. NORVASC [Concomitant]
     Indication: HYPERTENSION
     Dosage: 5MG TWICE PER DAY
  3. ATENOLOL [Concomitant]
     Indication: HYPERTENSION
     Dosage: 50MG PER DAY
  4. LISINOPRIL [Concomitant]
     Indication: HYPERTENSION
     Dosage: 20MG PER DAY
  5. LIPITOR [Concomitant]
     Indication: LIPIDS DECREASED

REACTIONS (1)
  - TRANSIENT ISCHAEMIC ATTACK [None]
